FAERS Safety Report 7093865-9 (Version None)
Quarter: 2010Q4

REPORT INFORMATION
  Report Type: 
  Country: None (occurrence: None)
  Receive Date: 20101110
  Receipt Date: 20101105
  Transmission Date: 20110411
  Serious: Yes (Hospitalization, Other)
  Sender: FDA-Public Use
  Company Number: B0676557B

PATIENT
  Sex: Female
  Weight: 53 kg

DRUGS (5)
  1. PAZOPANIB [Suspect]
     Indication: NEOPLASM
     Dosage: 16800MG CUMULATIVE DOSE
     Route: 048
     Dates: start: 20100817
  2. CISPLATIN [Suspect]
     Indication: NEOPLASM
     Dosage: 118MG CYCLIC
     Route: 042
     Dates: start: 20100825
  3. OLICLINOMEL [Concomitant]
     Indication: DECREASED APPETITE
     Route: 042
     Dates: start: 20100923
  4. HYDRATION [Concomitant]
     Indication: DECREASED APPETITE
     Route: 042
     Dates: start: 20100909
  5. BICARBONATES + FUNGIZONE [Concomitant]
     Indication: MUCOSAL INFLAMMATION
     Dates: start: 20100918

REACTIONS (1)
  - PULMONARY EMBOLISM [None]
